FAERS Safety Report 5720829-7 (Version None)
Quarter: 2008Q2

REPORT INFORMATION
  Report Type: 
  Country: None (occurrence: None)
  Receive Date: 20080423
  Receipt Date: 20071009
  Transmission Date: 20081010
  Serious: Yes (Death, Other)
  Sender: FDA-Public Use
  Company Number: 248578

PATIENT
  Age: 76 Year
  Sex: Female
  Weight: 86.2 kg

DRUGS (3)
  1. AVASTIN [Suspect]
     Indication: COLORECTAL CANCER METASTATIC
     Dosage: 475 MG, Q2W, INTRAVENOUS
     Route: 042
     Dates: start: 20070206
  2. FLUOROURACIL [Concomitant]
  3. CAMPTOSAR [Concomitant]

REACTIONS (1)
  - FISTULA [None]
